FAERS Safety Report 6069773-9 (Version None)
Quarter: 2009Q1

REPORT INFORMATION
  Report Type: 
  Country: None (occurrence: None)
  Receive Date: 20090204
  Receipt Date: 20090204
  Transmission Date: 20090719
  Serious: No
  Sender: FDA-Public Use
  Company Number: None

PATIENT
  Age: 43 Year
  Sex: Female

DRUGS (1)
  1. GADOBENATE DIMEGLUMINE BRACCO [Suspect]
     Indication: NUCLEAR MAGNETIC RESONANCE IMAGING
     Dosage: 10 ML IV
     Route: 042
     Dates: start: 20090202, end: 20090202

REACTIONS (2)
  - PHARYNGEAL OEDEMA [None]
  - PRURITUS [None]
